FAERS Safety Report 19060746 (Version 10)
Quarter: 2023Q1

REPORT INFORMATION
  Report Type: Spontaneous
  Country: BR (occurrence: BR)
  Receive Date: 20210325
  Receipt Date: 20230308
  Transmission Date: 20230417
  Serious: Yes (Hospitalization, Other)
  Sender: FDA-Public Use
  Company Number: BR-GLAXOSMITHKLINE-BR2021AMR066091

PATIENT

DRUGS (2)
  1. NUCALA [Suspect]
     Active Substance: MEPOLIZUMAB
     Indication: Asthma
     Dosage: 100 MG
     Route: 042
     Dates: start: 20201123
  2. NUCALA [Suspect]
     Active Substance: MEPOLIZUMAB
     Dosage: 100 MG
     Route: 058
     Dates: start: 20211123, end: 20220630

REACTIONS (11)
  - Asthma [Unknown]
  - Asthmatic crisis [Not Recovered/Not Resolved]
  - Cough [Recovered/Resolved]
  - Dyspnoea [Not Recovered/Not Resolved]
  - Insomnia [Recovering/Resolving]
  - Chest pain [Recovering/Resolving]
  - Rhinorrhoea [Not Recovered/Not Resolved]
  - Sneezing [Unknown]
  - Product dose omission issue [Unknown]
  - Product availability issue [Unknown]
  - Inappropriate schedule of product administration [Unknown]

NARRATIVE: CASE EVENT DATE: 20210201
